FAERS Safety Report 25167258 (Version 1)
Quarter: 2025Q2

REPORT INFORMATION
  Report Type: Spontaneous
  Country: CO (occurrence: CO)
  Receive Date: 20250407
  Receipt Date: 20250407
  Transmission Date: 20250717
  Serious: Yes (Other)
  Sender: MERCK SHARP AND DOHME
  Company Number: CO-009507513-2258733

PATIENT
  Sex: Male

DRUGS (1)
  1. JANUMET [Suspect]
     Active Substance: METFORMIN HYDROCHLORIDE\SITAGLIPTIN PHOSPHATE
     Indication: Type 2 diabetes mellitus
     Dosage: STRENGTH: 50/1000, DAILY DOSAGE IS ONE TABLET AFTER BREAKFAST AND ONE TABLET AFTER DINNER
     Route: 048
     Dates: start: 2019

REACTIONS (7)
  - Arrhythmia [Recovering/Resolving]
  - Product dose omission issue [Unknown]
  - Product supply issue [Unknown]
  - COVID-19 [Unknown]
  - Blood glucose increased [Recovered/Resolved]
  - Blood glucose increased [Unknown]
  - Product supply issue [Unknown]

NARRATIVE: CASE EVENT DATE: 20220101
